APPROVED DRUG PRODUCT: TRIPROLIDINE AND PSEUDOEPHEDRINE HYDROCHLORIDES
Active Ingredient: PSEUDOEPHEDRINE HYDROCHLORIDE; TRIPROLIDINE HYDROCHLORIDE
Strength: 120MG;5MG
Dosage Form/Route: TABLET, EXTENDED RELEASE;ORAL
Application: A072758 | Product #001
Applicant: KV PHARMACEUTICAL CO
Approved: Nov 25, 1991 | RLD: No | RS: No | Type: DISCN